FAERS Safety Report 6186133-0 (Version None)
Quarter: 2009Q2

REPORT INFORMATION
  Report Type: 
  Country: None (occurrence: None)
  Receive Date: 20090507
  Receipt Date: 20090507
  Transmission Date: 20091009
  Serious: Yes (Hospitalization, Other)
  Sender: FDA-Public Use
  Company Number: None

PATIENT
  Age: 19 Year
  Sex: Male
  Weight: 68.0396 kg

DRUGS (1)
  1. ACCUTANE [Suspect]
     Indication: ACNE
     Dosage: 20MG QD PO
     Route: 048
     Dates: start: 20020325, end: 20021025

REACTIONS (15)
  - ASTHENIA [None]
  - COLITIS ULCERATIVE [None]
  - DEPRESSION [None]
  - ECONOMIC PROBLEM [None]
  - EMOTIONAL DISTRESS [None]
  - FATIGUE [None]
  - FEAR [None]
  - FEELING OF DESPAIR [None]
  - FLANK PAIN [None]
  - GENERAL PHYSICAL HEALTH DETERIORATION [None]
  - HAEMATURIA [None]
  - INFLAMMATORY BOWEL DISEASE [None]
  - MARITAL PROBLEM [None]
  - RENAL DISORDER [None]
  - SUICIDAL IDEATION [None]
